FAERS Safety Report 7246499-7 (Version None)
Quarter: 2011Q1

REPORT INFORMATION
  Report Type: 
  Country: None (occurrence: None)
  Receive Date: 20110126
  Receipt Date: 20110119
  Transmission Date: 20110831
  Serious: Yes (Death, Hospitalization, Other)
  Sender: FDA-Public Use
  Company Number: US-SANOFI-AVENTIS-2010SA078131

PATIENT
  Age: 81 Year
  Sex: Male

DRUGS (19)
  1. ROCEPHIN [Concomitant]
  2. ZOFRAN [Concomitant]
  3. MULTAQ [Concomitant]
  4. FLAGYL [Concomitant]
  5. INVANZ [Concomitant]
  6. DOXAZOSIN [Concomitant]
  7. LASIX [Concomitant]
  8. ACETAMINOPHEN [Concomitant]
  9. CARVEDILOL [Concomitant]
  10. INSULIN [Concomitant]
  11. ASPIRIN [Concomitant]
  12. LISINOPRIL [Concomitant]
  13. PLAVIX [Suspect]
     Indication: CORONARY ARTERY DISEASE
     Route: 048
     Dates: start: 20030101, end: 20101001
  14. PLAVIX [Suspect]
     Route: 048
     Dates: start: 20030101, end: 20101001
  15. ZETIA [Concomitant]
  16. IRON [Concomitant]
  17. PROTONIX [Concomitant]
  18. METOPROLOL [Concomitant]
  19. MULTI-VITAMINS [Concomitant]

REACTIONS (14)
  - MALAISE [None]
  - DIARRHOEA [None]
  - NAUSEA [None]
  - PYREXIA [None]
  - VENTRICULAR TACHYCARDIA [None]
  - HYPERVOLAEMIA [None]
  - PANCYTOPENIA [None]
  - ABDOMINAL TENDERNESS [None]
  - METABOLIC ACIDOSIS [None]
  - RENAL FAILURE [None]
  - ACUTE RESPIRATORY DISTRESS SYNDROME [None]
  - RENAL ISCHAEMIA [None]
  - HYPOXIA [None]
  - ABDOMINAL PAIN [None]
